FAERS Safety Report 6180604-9 (Version None)
Quarter: 2009Q2

REPORT INFORMATION
  Report Type: 
  Country: None (occurrence: None)
  Receive Date: 20090506
  Receipt Date: 20090427
  Transmission Date: 20091009
  Serious: Yes (Death)
  Sender: FDA-Public Use
  Company Number: BR-ELI_LILLY_AND_COMPANY-BR200901003110

PATIENT
  Sex: Male

DRUGS (1)
  1. CYMBALTA [Suspect]
     Indication: LUNG DISORDER
     Dosage: 60 MG, UNKNOWN
     Route: 048
     Dates: start: 20080901, end: 20090303

REACTIONS (1)
  - LUNG NEOPLASM MALIGNANT [None]
